FAERS Safety Report 13190486 (Version 1)
Quarter: 2017Q1

REPORT INFORMATION
  Report Type: Spontaneous
  Country: US (occurrence: US)
  Receive Date: 20170206
  Receipt Date: 20170206
  Transmission Date: 20170428
  Serious: Yes (Other)
  Sender: FDA-Public Use
  Company Number: US-AMGEN-USASP2017016775

PATIENT
  Age: 63 Year
  Sex: Female

DRUGS (2)
  1. DEMEROL [Concomitant]
     Active Substance: MEPERIDINE HYDROCHLORIDE
     Indication: PAIN
  2. ENBREL [Suspect]
     Active Substance: ETANERCEPT
     Indication: RHEUMATOID ARTHRITIS
     Dosage: UNK UNK, QWK
     Route: 065

REACTIONS (8)
  - Fibromyalgia [Unknown]
  - Diabetes mellitus [Unknown]
  - Drug dose omission [Unknown]
  - Mobility decreased [Unknown]
  - Hyperaesthesia [Unknown]
  - Incorrect product storage [Unknown]
  - Inflammation [Unknown]
  - Pain [Recovered/Resolved]

NARRATIVE: CASE EVENT DATE: 20170127
